FAERS Safety Report 9801151 (Version 2)
Quarter: 2014Q2

REPORT INFORMATION
  Report Type: Spontaneous
  Country: US (occurrence: US)
  Receive Date: 20140107
  Receipt Date: 20140606
  Transmission Date: 20141212
  Serious: Yes (Congenital Anomaly, Other)
  Sender: FDA-Public Use
  Company Number: US-PFIZER INC-2014000797

PATIENT
  Sex: Male

DRUGS (20)
  1. ZOLOFT [Suspect]
     Indication: ANXIETY
     Dosage: UNK
     Route: 064
     Dates: start: 2004, end: 200607
  2. ZOLOFT [Suspect]
     Indication: DEPRESSION
  3. ZOLOFT [Suspect]
     Indication: AFFECTIVE DISORDER
  4. PROMETHAZINE [Concomitant]
     Dosage: UNK
     Route: 064
  5. BUDEPRION XL [Concomitant]
     Dosage: UNK
     Route: 064
  6. NITROFURANTOIN [Concomitant]
     Dosage: UNK
     Route: 064
  7. PREDNISONE [Concomitant]
     Dosage: UNK
     Route: 064
  8. ALLEGRA-D [Concomitant]
     Dosage: UNK
     Route: 064
  9. ZITHROMAX [Concomitant]
     Dosage: UNK
     Route: 064
  10. HYDROCODONE [Concomitant]
     Dosage: UNK
     Route: 064
  11. PROCTOFOAM HC [Concomitant]
     Dosage: UNK
     Route: 064
  12. LEXAPRO [Concomitant]
     Dosage: UNK
     Route: 064
  13. VYTORIN [Concomitant]
     Dosage: UNK
     Route: 064
  14. CLINDAMYCIN [Concomitant]
     Dosage: UNK
     Route: 064
  15. CIPROFLOXACIN [Concomitant]
     Dosage: UNK
     Route: 064
  16. ACETAMINOPHEN/CODEINE [Concomitant]
     Dosage: UNK
     Route: 064
  17. CEPHALEXIN [Concomitant]
     Dosage: UNK
     Route: 064
  18. MEDROXYPROGESTERONE [Concomitant]
     Dosage: UNK
     Route: 064
  19. IBUPROFEN [Concomitant]
     Dosage: UNK
     Route: 064
  20. PRENATAL VITAMINS [Concomitant]
     Dosage: UNK
     Route: 064

REACTIONS (13)
  - Maternal exposure during pregnancy [Unknown]
  - Talipes [Unknown]
  - Spina bifida [Unknown]
  - Congenital hydrocephalus [Unknown]
  - Arnold-Chiari malformation [Unknown]
  - Neurogenic bladder [Unknown]
  - Ankyloglossia congenital [Unknown]
  - Cryptorchism [Unknown]
  - Inguinal hernia [Unknown]
  - Failure to thrive [Unknown]
  - Premature baby [Unknown]
  - Gastrooesophageal reflux disease [Unknown]
  - Coordination abnormal [Unknown]
